FAERS Safety Report 25019427 (Version 1)
Quarter: 2025Q1

REPORT INFORMATION
  Report Type: Report from Study
  Country: FI (occurrence: FI)
  Receive Date: 20250227
  Receipt Date: 20250227
  Transmission Date: 20250409
  Serious: Yes (Hospitalization)
  Sender: ORGANON
  Company Number: FI-MYLANLABS-2025M1014359

PATIENT
  Age: 89 Year
  Sex: Female

DRUGS (4)
  1. SIMVASTATIN [Suspect]
     Active Substance: SIMVASTATIN
     Indication: Product used for unknown indication
     Dates: start: 20250210
  2. CLOZAPINE [Suspect]
     Active Substance: CLOZAPINE
     Indication: Product used for unknown indication
  3. CLOZAPINE [Suspect]
     Active Substance: CLOZAPINE
     Dates: start: 20250210
  4. ZOLPIDEM [Suspect]
     Active Substance: ZOLPIDEM TARTRATE
     Indication: Product used for unknown indication
     Dates: start: 20250210

REACTIONS (4)
  - Rhabdomyolysis [Unknown]
  - Alanine aminotransferase increased [Not Recovered/Not Resolved]
  - Renal failure [Recovered/Resolved]
  - Overdose [Unknown]

NARRATIVE: CASE EVENT DATE: 20250210
